FAERS Safety Report 5155694-2 (Version None)
Quarter: 2006Q4

REPORT INFORMATION
  Report Type: 
  Country: None (occurrence: None)
  Receive Date: 20061114
  Receipt Date: 20061102
  Transmission Date: 20070319
  Serious: Yes (Death, Congenital Anomaly, Other)
  Sender: FDA-Public Use
  Company Number: 2006134956

PATIENT
  Age: 28 Year
  Sex: Male

DRUGS (2)
  1. VERAPAMIL HYDROCHLORIDE [Suspect]
     Dosage: 480 MG (240 MG), ORAL
     Route: 048
  2. COCAINE (COCAINE) [Suspect]

REACTIONS (5)
  - ACUTE RESPIRATORY DISTRESS SYNDROME [None]
  - CARDIAC DISORDER [None]
  - CHEST PAIN [None]
  - INCORRECT DOSE ADMINISTERED [None]
  - RENAL FAILURE ACUTE [None]
